FAERS Safety Report 24063500 (Version 1)
Quarter: 2024Q3

REPORT INFORMATION
  Report Type: Spontaneous
  Country: CN (occurrence: CN)
  Receive Date: 20240709
  Receipt Date: 20240709
  Transmission Date: 20241017
  Serious: Yes (Death)
  Sender: CHEPLAPHARM
  Company Number: CN-CHEPLA-2024008380

PATIENT
  Age: 58 Year
  Sex: Male

DRUGS (14)
  1. GANCICLOVIR [Suspect]
     Active Substance: GANCICLOVIR
  2. PIPERACILLIN AND TAZOBACTAM [Suspect]
     Active Substance: PIPERACILLIN SODIUM\TAZOBACTAM SODIUM
  3. MEROPENEM [Suspect]
     Active Substance: MEROPENEM
  4. MINOCYCLINE [Suspect]
     Active Substance: MINOCYCLINE HYDROCHLORIDE
  5. AZITHROMYCIN [Suspect]
     Active Substance: AZITHROMYCIN
  6. SULFAMETHOXAZOLE [Suspect]
     Active Substance: SULFAMETHOXAZOLE
  7. POLYMYXIN B [Suspect]
     Active Substance: POLYMYXIN B
  8. AMPHOTERICIN B [Suspect]
     Active Substance: AMPHOTERICIN B
  9. FLUCONAZOLE [Suspect]
     Active Substance: FLUCONAZOLE
  10. VORICONAZOLE [Suspect]
     Active Substance: VORICONAZOLE
  11. TIGECYCLINE [Suspect]
     Active Substance: TIGECYCLINE
  12. OMADACYCLINE [Suspect]
     Active Substance: OMADACYCLINE
  13. AVIBACTAM SODIUM\CEFTAZIDIME [Suspect]
     Active Substance: AVIBACTAM SODIUM\CEFTAZIDIME
  14. CILASTATIN SODIUM\IMIPENEM [Suspect]
     Active Substance: CILASTATIN SODIUM\IMIPENEM

REACTIONS (4)
  - Cardio-respiratory arrest [Fatal]
  - Septic shock [Fatal]
  - Pneumonia viral [Fatal]
  - Acute respiratory distress syndrome [Fatal]

NARRATIVE: CASE EVENT DATE: 20230707
